FAERS Safety Report 10493864 (Version 2)
Quarter: 2014Q4

REPORT INFORMATION
  Report Type: Report from Study
  Country: US (occurrence: US)
  Receive Date: 20141003
  Receipt Date: 20141003
  Transmission Date: 20150528
  Serious: Yes (Death, Other)
  Sender: FDA-Public Use
  Company Number: US-ROCHE-1468427

PATIENT
  Age: 63 Year
  Sex: Female

DRUGS (5)
  1. BEVACIZUMAB [Concomitant]
     Active Substance: BEVACIZUMAB
     Indication: METASTASIS
     Route: 042
     Dates: start: 20140722, end: 20140904
  2. XELODA [Suspect]
     Active Substance: CAPECITABINE
     Indication: HEPATIC CANCER
     Dosage: 1500MGS BID FOR 14 DAYS THEN STOP FOR 7 DAYS
     Route: 048
     Dates: start: 20140730, end: 20140808
  3. FENTANYL. [Concomitant]
     Active Substance: FENTANYL
  4. OXYCODONE [Concomitant]
     Active Substance: OXYCODONE
  5. ALLOPURINOL. [Concomitant]
     Active Substance: ALLOPURINOL

REACTIONS (3)
  - Rash [Not Recovered/Not Resolved]
  - Mucosal inflammation [Not Recovered/Not Resolved]
  - Hepatic cancer [Fatal]

NARRATIVE: CASE EVENT DATE: 20140807
